FAERS Safety Report 23040898 (Version 1)
Quarter: 2023Q4

REPORT INFORMATION
  Report Type: Spontaneous
  Country: US (occurrence: US)
  Receive Date: 20231006
  Receipt Date: 20231006
  Transmission Date: 20240110
  Serious: No
  Sender: FDA-Public Use
  Company Number: US-SA-SAC20231003000193

PATIENT
  Age: 61 Year
  Sex: Female

DRUGS (2)
  1. DUPIXENT [Suspect]
     Active Substance: DUPILUMAB
     Indication: Dermatitis atopic
     Dosage: 2 PENS (600 MG) ON DAY 1
     Route: 058
     Dates: start: 20230715, end: 20230715
  2. DUPIXENT [Suspect]
     Active Substance: DUPILUMAB
     Dosage: 1 PEN (300 MG) EVERY 14 DAYS THEREAFTER
     Route: 058
     Dates: start: 2023

REACTIONS (2)
  - Toothache [Unknown]
  - Rash [Recovered/Resolved]

NARRATIVE: CASE EVENT DATE: 20230901
